FAERS Safety Report 5705286-9 (Version None)
Quarter: 2008Q2

REPORT INFORMATION
  Report Type: 
  Country: None (occurrence: None)
  Receive Date: 20080410
  Receipt Date: 20080327
  Transmission Date: 20081010
  Serious: Yes (Hospitalization)
  Sender: FDA-Public Use
  Company Number: DSM-2008-00330

PATIENT
  Age: 40 Year
  Sex: Female

DRUGS (2)
  1. ALTEIS (OLMESARTAN MEDOXOMIL) (OLMESARTAN MEDOXOMIL) [Suspect]
     Indication: HYPERTENSION
     Dosage: ORAL
     Route: 048
  2. LODOZ (HYDROCHLOROTHIAZIDE, BISOPROLOL FUMARATE) (HYDROCHLOROTHIAZIDE, [Suspect]
     Indication: HYPERTENSION
     Dosage: ORAL
     Route: 048

REACTIONS (5)
  - ABORTION INDUCED [None]
  - DRUG EXPOSURE DURING PREGNANCY [None]
  - FOETAL GROWTH RETARDATION [None]
  - OLIGOHYDRAMNIOS [None]
  - PREGNANCY [None]
